FAERS Safety Report 24601584 (Version 1)
Quarter: 2024Q4

REPORT INFORMATION
  Report Type: Spontaneous
  Country: US (occurrence: US)
  Receive Date: 20241111
  Receipt Date: 20241111
  Transmission Date: 20250115
  Serious: No
  Sender: ROCHE
  Company Number: US-ROCHE-10000126699

PATIENT
  Sex: Female

DRUGS (2)
  1. ACTEMRA [Suspect]
     Active Substance: TOCILIZUMAB
     Indication: Giant cell arteritis
     Dosage: 1 DOSE
     Route: 065
     Dates: start: 20241010, end: 20241010
  2. ATOVAQUONE [Concomitant]
     Active Substance: ATOVAQUONE

REACTIONS (4)
  - Rash [Recovering/Resolving]
  - Headache [Recovered/Resolved]
  - Pruritus [Recovering/Resolving]
  - Liver function test increased [Recovering/Resolving]

NARRATIVE: CASE EVENT DATE: 20241010
